FAERS Safety Report 11120416 (Version 1)
Quarter: 2015Q2

REPORT INFORMATION
  Report Type: Spontaneous
  Country: JP (occurrence: JP)
  Receive Date: 20150518
  Receipt Date: 20150518
  Transmission Date: 20150821
  Serious: Yes (Other)
  Sender: FDA-Public Use
  Company Number: JP-GILEAD-2015-0153555

PATIENT
  Sex: Female

DRUGS (3)
  1. ZEFIX [Concomitant]
     Active Substance: LAMIVUDINE
  2. HEPSERA [Suspect]
     Active Substance: ADEFOVIR DIPIVOXIL
     Indication: CHRONIC HEPATITIS B
     Route: 048
  3. ENTECAVIR. [Concomitant]
     Active Substance: ENTECAVIR

REACTIONS (5)
  - Ascites [Unknown]
  - Drug tolerance [Unknown]
  - Hepatic encephalopathy [Unknown]
  - Liver disorder [Unknown]
  - Hepatic function abnormal [Recovered/Resolved]
